FAERS Safety Report 8905687 (Version 2)
Quarter: 2012Q4

REPORT INFORMATION
  Report Type: 
  Country: GB (occurrence: GB)
  Receive Date: 20121109
  Receipt Date: 20121228
  Transmission Date: 20130627
  Serious: Yes (Hospitalization, Other)
  Sender: FDA-Public Use
  Company Number: GB-WATSON-2012-18821

PATIENT
  Age: 48 Year
  Sex: Male

DRUGS (8)
  1. AMLODIPINE (UNKNOWN) [Suspect]
     Indication: HYPERTENSION
     Dosage: 10 mg, daily
     Route: 048
     Dates: start: 20090101
  2. TEGRETOL [Suspect]
     Indication: EPILEPSY
     Dosage: 400 mg, bid
     Route: 048
     Dates: start: 20060601
  3. ANTACID                            /00018101/ [Concomitant]
     Indication: PRODUCT USED FOR UNKNOWN INDICATION
     Dosage: UNK, unknown
     Route: 065
  4. LANSOPRAZOLE [Concomitant]
     Indication: DYSPEPSIA
     Dosage: 30 mg, daily
     Route: 048
     Dates: start: 20030203
  5. ASPIRIN [Concomitant]
     Indication: CEREBROVASCULAR ACCIDENT
     Dosage: 75 mg, daily
     Route: 048
     Dates: start: 20090201
  6. ATORVASTATIN [Concomitant]
     Indication: CEREBROVASCULAR ACCIDENT
     Dosage: 40 mg, daily
     Route: 048
     Dates: start: 20090201
  7. KEPPRA [Concomitant]
     Indication: EPILEPSY
     Dosage: 2 g, bid
     Route: 048
     Dates: start: 20040908
  8. SIMVASTATIN [Concomitant]
     Indication: PRODUCT USED FOR UNKNOWN INDICATION
     Dosage: UNK, unknown
     Route: 065

REACTIONS (6)
  - Drug interaction [Unknown]
  - Hypertension [Not Recovered/Not Resolved]
  - Cerebrovascular accident [Recovering/Resolving]
  - Basal ganglia infarction [Unknown]
  - Hemiparesis [Unknown]
  - Fatigue [Unknown]
